FAERS Safety Report 5430110-1 (Version None)
Quarter: 2007Q3

REPORT INFORMATION
  Report Type: 
  Country: None (occurrence: None)
  Receive Date: 20070829
  Receipt Date: 20070828
  Transmission Date: 20080115
  Serious: Yes (Hospitalization)
  Sender: FDA-Public Use
  Company Number: NL-MERCK-0705NLD00040

PATIENT
  Age: 72 Year
  Sex: Male

DRUGS (5)
  1. ZETIA [Suspect]
     Indication: BLOOD CHOLESTEROL INCREASED
     Route: 048
     Dates: start: 20070125, end: 20070328
  2. OMEPRAZOLE MAGNESIUM [Concomitant]
     Route: 048
     Dates: start: 19960101
  3. MEBEVERINE HYDROCHLORIDE [Concomitant]
     Route: 048
     Dates: start: 19960101
  4. ATORVASTATIN CALCIUM [Concomitant]
     Route: 048
     Dates: start: 19960101
  5. ASPIRIN CALCIUM [Concomitant]
     Route: 048
     Dates: start: 19960101

REACTIONS (3)
  - ANGINA PECTORIS [None]
  - FATIGUE [None]
  - SYNCOPE [None]
